FAERS Safety Report 24262844 (Version 1)
Quarter: 2024Q3

REPORT INFORMATION
  Report Type: Spontaneous
  Country: US (occurrence: None)
  Receive Date: 20240827
  Receipt Date: 20240827
  Transmission Date: 20241017
  Serious: Yes (Disabling, Other)
  Sender: Public
  Company Number: None

PATIENT
  Age: 64 Year
  Sex: Female
  Weight: 69.3 kg

DRUGS (3)
  1. VABYSMO [Suspect]
     Active Substance: FARICIMAB\FARICIMAB-SVOA
     Indication: Detachment of retinal pigment epithelium
     Dosage: OTHER FREQUENCY : MONTHLY INJECTION; IN  EYE OPHTHALMIC?
     Route: 047
     Dates: start: 20240326, end: 20240802
  2. ZYRTEC [Concomitant]
     Active Substance: CETIRIZINE HYDROCHLORIDE
  3. Many vitamins and minerals [Concomitant]

REACTIONS (4)
  - Pain in extremity [None]
  - Gait disturbance [None]
  - Insomnia [None]
  - Impaired work ability [None]

NARRATIVE: CASE EVENT DATE: 20240802
